APPROVED DRUG PRODUCT: SELENIOUS ACID
Active Ingredient: SELENIOUS ACID
Strength: EQ 600MCG SELENIUM/10ML (EQ 60MCG SELENIUM/ML)
Dosage Form/Route: SOLUTION;INTRAVENOUS
Application: A218536 | Product #002 | TE Code: AP
Applicant: RK PHARMA INC
Approved: Dec 31, 2025 | RLD: No | RS: No | Type: RX